FAERS Safety Report 11216177 (Version 1)
Quarter: 2015Q2

REPORT INFORMATION
  Report Type: Spontaneous
  Country: US (occurrence: US)
  Receive Date: 20150624
  Receipt Date: 20150624
  Transmission Date: 20150821
  Serious: Yes (Other)
  Sender: FDA-Public Use
  Company Number: US-BIOMARINAP-US-2015-106671

PATIENT
  Age: 35 Year
  Sex: Female

DRUGS (1)
  1. VIMIZIM [Suspect]
     Active Substance: ELOSULFASE ALFA
     Indication: MUCOPOLYSACCHARIDOSIS IV
     Route: 042

REACTIONS (5)
  - Exposure during pregnancy [Recovered/Resolved]
  - Breast abscess [Unknown]
  - Mastitis [Unknown]
  - Cephalo-pelvic disproportion [Unknown]
  - Umbilical hernia [Unknown]
